FAERS Safety Report 5716491-X (Version None)
Quarter: 2008Q2

REPORT INFORMATION
  Report Type: 
  Country: None (occurrence: None)
  Receive Date: 20080424
  Receipt Date: 20080417
  Transmission Date: 20081010
  Serious: Yes (Death, Other)
  Sender: FDA-Public Use
  Company Number: HQWYE176714MAY07

PATIENT
  Sex: Female

DRUGS (4)
  1. PREMPRO [Suspect]
  2. PROVERA [Suspect]
  3. MEDROXYPROGESTERONE ACETATE [Suspect]
  4. CONJUGATED ESTROGENS [Suspect]

REACTIONS (1)
  - BREAST CANCER [None]
